FAERS Safety Report 20308351 (Version 1)
Quarter: 2022Q1

REPORT INFORMATION
  Report Type: Report from Study
  Country: CA (occurrence: CA)
  Receive Date: 20220107
  Receipt Date: 20220107
  Transmission Date: 20220423
  Serious: Yes (Other)
  Sender: FDA-Public Use
  Company Number: CA-NOVARTISPH-NVSC2021CA301509

PATIENT
  Sex: Female

DRUGS (4)
  1. METHOTREXATE [Suspect]
     Active Substance: METHOTREXATE
     Indication: Tubulointerstitial nephritis and uveitis syndrome
     Dosage: UNK
     Route: 065
  2. AMOXICILLIN [Suspect]
     Active Substance: AMOXICILLIN
     Indication: Hypersensitivity
     Dosage: UNK
     Route: 065
  3. CEFZIL [Concomitant]
     Active Substance: CEFPROZIL
     Indication: Product used for unknown indication
     Dosage: UNK
     Route: 065
  4. RUPATADINE FUMARATE [Concomitant]
     Active Substance: RUPATADINE FUMARATE
     Indication: Product used for unknown indication
     Dosage: 1 DOSAGE FORM, BID
     Route: 065

REACTIONS (7)
  - Tubulointerstitial nephritis and uveitis syndrome [Unknown]
  - Anaphylactic reaction [Unknown]
  - Urticaria [Unknown]
  - Angioedema [Unknown]
  - Serum sickness [Unknown]
  - Idiopathic urticaria [Unknown]
  - Headache [Unknown]

NARRATIVE: CASE EVENT DATE: 20180101
